FAERS Safety Report 13737781 (Version 2)
Quarter: 2017Q4

REPORT INFORMATION
  Report Type: Spontaneous
  Country: US (occurrence: US)
  Receive Date: 20170710
  Receipt Date: 20171004
  Transmission Date: 20180320
  Serious: Yes (Other)
  Sender: FDA-Public Use
  Company Number: US-SAOL THERAPEUTICS-2016SAO00372

PATIENT
  Sex: Female

DRUGS (27)
  1. HYDROMORPHONE HCL [Suspect]
     Active Substance: HYDROMORPHONE HYDROCHLORIDE
     Dosage: 2X DAY
     Route: 048
  2. VALIUM [Suspect]
     Active Substance: DIAZEPAM
     Dosage: 3X DAY
     Route: 048
  3. BACLOFEN. [Suspect]
     Active Substance: BACLOFEN
     Indication: MUSCLE SPASTICITY
     Dosage: 1100 ?G, \DAY
     Dates: start: 2005
  4. BACLOFEN. [Suspect]
     Active Substance: BACLOFEN
     Dosage: 4 UNK, 1X/DAY
     Route: 048
     Dates: start: 20131021
  5. STOOL SOFTENER (DOCUSATE) [Suspect]
     Active Substance: DOCUSATE
     Dosage: 1X DAY
     Route: 048
     Dates: start: 20130105
  6. TIZANIDINE HCL [Suspect]
     Active Substance: TIZANIDINE HYDROCHLORIDE
     Dosage: 2X DAY
     Route: 048
     Dates: start: 20131226
  7. SYMMETREL [Suspect]
     Active Substance: AMANTADINE HYDROCHLORIDE
     Dosage: 2X DAY
     Route: 048
  8. BACLOFEN. [Suspect]
     Active Substance: BACLOFEN
     Indication: MULTIPLE SCLEROSIS
     Dosage: 850 ?G, \DAY
     Route: 037
     Dates: end: 2017
  9. BACLOFEN. [Suspect]
     Active Substance: BACLOFEN
     Dosage: 2X DAY
     Route: 048
  10. OXYBUTYNIN CHLORIDE. [Suspect]
     Active Substance: OXYBUTYNIN CHLORIDE
     Dosage: 2X DAY
     Route: 048
     Dates: start: 20130906
  11. GILENYA [Suspect]
     Active Substance: FINGOLIMOD HYDROCHLORIDE
     Dosage: 0.5 MG, UNK
     Route: 048
     Dates: start: 20131106
  12. FENTANYL. [Suspect]
     Active Substance: FENTANYL
     Dosage: 100 ?G, UNK
     Route: 062
     Dates: start: 20131213
  13. ^STEROID^ [Suspect]
     Active Substance: UNSPECIFIED INGREDIENT
  14. COMPOUNDED BACLOFEN [Suspect]
     Active Substance: BACLOFEN
     Indication: MUSCLE SPASTICITY
     Dosage: 859.3 ?G, \DAY
     Route: 037
     Dates: start: 20000420
  15. DIAZEPAM. [Suspect]
     Active Substance: DIAZEPAM
     Dosage: 1X DAY
     Route: 048
     Dates: start: 20130918
  16. LYRICA [Suspect]
     Active Substance: PREGABALIN
     Dosage: 75 MG, UNK
     Route: 048
  17. GILENYA [Suspect]
     Active Substance: FINGOLIMOD HYDROCHLORIDE
     Dosage: 0.5 UNK, UNK
     Route: 048
  18. FOSAMAX [Suspect]
     Active Substance: ALENDRONATE SODIUM
     Dosage: UNK, 1X/WEEK
     Route: 048
  19. PROZAC [Suspect]
     Active Substance: FLUOXETINE HYDROCHLORIDE
     Dosage: 1X/DAY
     Route: 048
  20. ZOLPIDEM TARTRATE. [Suspect]
     Active Substance: ZOLPIDEM TARTRATE
     Dosage: 1X/DAY
     Route: 048
  21. BACLOFEN. [Suspect]
     Active Substance: BACLOFEN
     Dosage: 100 - 150 ?G, \DAY
     Dates: start: 2017
  22. PROMETHAZINE HCL [Suspect]
     Active Substance: PROMETHAZINE HYDROCHLORIDE
     Dosage: 1 TABLETS, EVERY 4-6 HOURS
     Route: 048
     Dates: start: 20140212
  23. NORVASC [Suspect]
     Active Substance: AMLODIPINE BESYLATE
     Dosage: 1X DAY
     Route: 048
  24. COMPOUNDED BACLOFEN [Suspect]
     Active Substance: BACLOFEN
     Indication: MULTIPLE SCLEROSIS
  25. AMANTADINE HCL [Suspect]
     Active Substance: AMANTADINE HYDROCHLORIDE
     Dosage: 200 MG, 1X/DAY
     Route: 048
     Dates: start: 20140204
  26. ZANAFLEX [Suspect]
     Active Substance: TIZANIDINE HYDROCHLORIDE
     Dosage: 2X DAY
     Route: 048
  27. OXYBUTYNIN CHLORIDE. [Suspect]
     Active Substance: OXYBUTYNIN CHLORIDE
     Dosage: 1X DAY
     Route: 048

REACTIONS (10)
  - Incorrect dose administered [Unknown]
  - Overdose [Unknown]
  - Weight increased [Recovered/Resolved]
  - Device dislocation [Not Recovered/Not Resolved]
  - Implant site extravasation [Unknown]
  - Device kink [Recovered/Resolved]
  - Vision blurred [Unknown]
  - Weight decreased [Unknown]
  - Fall [Unknown]
  - Coma [Unknown]

NARRATIVE: CASE EVENT DATE: 2004
